FAERS Safety Report 11126429 (Version 1)
Quarter: 2015Q2

REPORT INFORMATION
  Report Type: Spontaneous
  Country: CA (occurrence: None)
  Receive Date: 20150501
  Receipt Date: 20150501
  Transmission Date: 20150821
  Serious: No
  Sender: FDA-Public Use
  Company Number: CA-145601

PATIENT
  Age: 34 Year
  Sex: Female

DRUGS (2)
  1. WINRHO SDF LIQUID [Suspect]
     Active Substance: HUMAN RHO(D) IMMUNE GLOBULIN
     Indication: PROPHYLAXIS AGAINST RH ISOIMMUNISATION
     Route: 042
     Dates: start: 20141113, end: 20141113
  2. TYLENOL [Concomitant]
     Active Substance: ACETAMINOPHEN

REACTIONS (6)
  - Body temperature increased [None]
  - Blood pressure systolic increased [None]
  - Tachycardia [None]
  - Haemolysis [None]
  - Chills [None]
  - Tremor [None]

NARRATIVE: CASE EVENT DATE: 20141113
